FAERS Safety Report 24050694 (Version 5)
Quarter: 2024Q4

REPORT INFORMATION
  Report Type: Spontaneous
  Country: CA (occurrence: CA)
  Receive Date: 20240704
  Receipt Date: 20241010
  Transmission Date: 20250114
  Serious: No
  Sender: PFIZER
  Company Number: CA-PFIZER INC-202400184239

PATIENT
  Age: 29 Year
  Sex: Female

DRUGS (3)
  1. ABRILADA [Suspect]
     Active Substance: ADALIMUMAB-AFZB
     Indication: Hidradenitis
     Dosage: FIRST DOSE, WEEK 0 AT 160 MG, WEEK 2 AT 80 MG THEN 40 MG EVERY OTHER WEEK
     Route: 058
     Dates: start: 20240502
  2. ABRILADA [Suspect]
     Active Substance: ADALIMUMAB-AFZB
     Dosage: WEEK 2, WEEK 0 AT 160 MG, WEEK 2 AT 80 MG THEN 40 MG EVERY OTHER WEEK
     Route: 058
     Dates: start: 20240515
  3. TRAMADOL [Concomitant]
     Active Substance: TRAMADOL
     Dosage: UNK

REACTIONS (1)
  - Device defective [Unknown]

NARRATIVE: CASE EVENT DATE: 20240529
